FAERS Safety Report 6006953-2 (Version None)
Quarter: 2008Q4

REPORT INFORMATION
  Report Type: 
  Country: None (occurrence: None)
  Receive Date: 20081217
  Receipt Date: 20071130
  Transmission Date: 20090506
  Serious: No
  Sender: FDA-Public Use
  Company Number: US-ASTRAZENECA-2007UW27414

PATIENT
  Age: 60 Year
  Sex: Female
  Weight: 83.9 kg

DRUGS (12)
  1. CRESTOR [Suspect]
     Indication: BLOOD CHOLESTEROL INCREASED
     Route: 048
  2. WALBUTRIN [Concomitant]
  3. LYRICA [Concomitant]
  4. CELEBREX [Concomitant]
  5. PRILOSEC [Concomitant]
  6. ENABLEX [Concomitant]
  7. RHINOCORT [Concomitant]
  8. RESTASIS [Concomitant]
  9. MIRALAX [Concomitant]
  10. VAGISAN [Concomitant]
  11. ESTRASORB [Concomitant]
  12. ANDROGEL [Concomitant]

REACTIONS (1)
  - INSOMNIA [None]
